FAERS Safety Report 24107750 (Version 9)
Quarter: 2025Q2

REPORT INFORMATION
  Report Type: Spontaneous
  Country: IT (occurrence: IT)
  Receive Date: 20240718
  Receipt Date: 20250620
  Transmission Date: 20250717
  Serious: Yes (Other)
  Sender: ORGANON
  Company Number: IT-STADA-01263392

PATIENT
  Age: 60 Year
  Sex: Male

DRUGS (7)
  1. EZETIMIBE [Suspect]
     Active Substance: EZETIMIBE
     Indication: Dyslipidaemia
     Route: 065
     Dates: start: 201604
  2. EZETIMIBE [Suspect]
     Active Substance: EZETIMIBE
     Indication: Hypercholesterolaemia
  3. EZETIMIBE [Suspect]
     Active Substance: EZETIMIBE
     Indication: Product used for unknown indication
  4. CRESTOR [Suspect]
     Active Substance: ROSUVASTATIN CALCIUM
     Indication: Dyslipidaemia
     Route: 048
  5. ALIROCUMAB [Concomitant]
     Active Substance: ALIROCUMAB
     Indication: Dyslipidaemia
     Route: 065
  6. ALIROCUMAB [Concomitant]
     Active Substance: ALIROCUMAB
     Indication: Product used for unknown indication
  7. INCLISIRAN [Concomitant]
     Active Substance: INCLISIRAN
     Indication: Dyslipidaemia

REACTIONS (3)
  - Myalgia [Unknown]
  - Drug intolerance [Unknown]
  - Nausea [Unknown]
